FAERS Safety Report 24874440 (Version 1)
Quarter: 2025Q1

REPORT INFORMATION
  Report Type: Spontaneous
  Country: US (occurrence: None)
  Receive Date: 20250122
  Receipt Date: 20250122
  Transmission Date: 20250409
  Serious: Yes (Hospitalization)
  Sender: FDA-CTU
  Company Number: None

PATIENT
  Age: 43 Year
  Sex: Female

DRUGS (5)
  1. OLUMIANT [Suspect]
     Active Substance: BARICITINIB
     Indication: Alopecia areata
     Dosage: FREQUENCY : DAILY;?
     Route: 048
     Dates: start: 20241202, end: 20250107
  2. MONTELUKAST [Concomitant]
     Active Substance: MONTELUKAST
  3. ONDANSETRON [Concomitant]
     Active Substance: ONDANSETRON
  4. MINOXIDIL [Concomitant]
     Active Substance: MINOXIDIL
  5. PRISTIQ EXTENDED-RELEASE [Concomitant]
     Active Substance: DESVENLAFAXINE SUCCINATE

REACTIONS (2)
  - Unresponsive to stimuli [None]
  - Deep vein thrombosis [None]

NARRATIVE: CASE EVENT DATE: 20250107
